FAERS Safety Report 13515589 (Version 1)
Quarter: 2017Q2

REPORT INFORMATION
  Report Type: Spontaneous
  Country: US (occurrence: US)
  Receive Date: 20170504
  Receipt Date: 20170504
  Transmission Date: 20170830
  Serious: Yes (Life-Threatening, Other)
  Sender: FDA-Public Use
  Company Number: US-PFIZER INC-2017193984

PATIENT
  Age: 45 Year
  Sex: Female
  Weight: 88.44 kg

DRUGS (8)
  1. EPIPEN [Suspect]
     Active Substance: EPINEPHRINE
     Indication: ANAPHYLACTIC REACTION
     Dosage: UNK, SINGLE
     Route: 030
     Dates: start: 20170420, end: 20170420
  2. IPRATROPIUM [Concomitant]
     Active Substance: IPRATROPIUM
  3. ALCABO [Concomitant]
     Dosage: 40 MG, QD
  4. DIPHENHYDRAMINE. [Concomitant]
     Active Substance: DIPHENHYDRAMINE
     Dosage: Q2-4H
  5. DULOXETINE HYDROCHLORIDE. [Concomitant]
     Active Substance: DULOXETINE HYDROCHLORIDE
     Indication: NEURALGIA
     Dosage: 30 MG, UNK
  6. SALBUTAMOL [Concomitant]
     Active Substance: ALBUTEROL
     Dosage: UNK, QD
  7. PREDNISONE. [Concomitant]
     Active Substance: PREDNISONE
     Dosage: UNK, QD
  8. CROMOGLICATE SODIUM [Concomitant]
     Active Substance: CROMOLYN SODIUM
     Dosage: UNK
     Route: 048

REACTIONS (5)
  - Drug dose omission [Recovered/Resolved]
  - Device failure [Recovered/Resolved]
  - Needle issue [Recovered/Resolved]
  - Product quality issue [Recovered/Resolved]
  - Device use issue [Recovered/Resolved]

NARRATIVE: CASE EVENT DATE: 20170420
